FAERS Safety Report 20384651 (Version 1)
Quarter: 2022Q1

REPORT INFORMATION
  Report Type: Spontaneous
  Country: US (occurrence: US)
  Receive Date: 20220127
  Receipt Date: 20220127
  Transmission Date: 20220423
  Serious: No
  Sender: FDA-Public Use
  Company Number: US-ALLERGAN-2103375US

PATIENT

DRUGS (1)
  1. BOTOX COSMETIC [Suspect]
     Active Substance: ONABOTULINUMTOXINA
     Indication: Product used for unknown indication
     Dosage: 90 UNITS, SINGLE
     Dates: start: 20200929, end: 20200929

REACTIONS (3)
  - Multiple use of single-use product [Unknown]
  - Wrong technique in product usage process [Unknown]
  - Drug ineffective [Unknown]
